FAERS Safety Report 14243949 (Version 1)
Quarter: 2017Q4

REPORT INFORMATION
  Report Type: Spontaneous
  Country: US (occurrence: US)
  Receive Date: 20171201
  Receipt Date: 20171201
  Transmission Date: 20180321
  Serious: Yes (Other)
  Sender: FDA-Public Use
  Company Number: US-009507513-1711USA010357

PATIENT
  Sex: Female

DRUGS (1)
  1. REMERON [Suspect]
     Active Substance: MIRTAZAPINE
     Indication: FEELING ABNORMAL
     Route: 048

REACTIONS (5)
  - Suicidal ideation [Unknown]
  - Headache [Unknown]
  - Tremor [Unknown]
  - Vomiting [Unknown]
  - Withdrawal syndrome [Unknown]
